FAERS Safety Report 9401127 (Version 1)
Quarter: 2013Q3

REPORT INFORMATION
  Report Type: Report from Study
  Country: US (occurrence: US)
  Receive Date: 20130715
  Receipt Date: 20130715
  Transmission Date: 20140515
  Serious: Yes (Hospitalization)
  Sender: FDA-Public Use
  Company Number: US-ACTELION-A-US2013-81522

PATIENT
  Age: 66 Year
  Sex: Female

DRUGS (1)
  1. VENTAVIS [Suspect]
     Indication: PULMONARY ARTERIAL HYPERTENSION
     Dosage: UNK
     Route: 055

REACTIONS (7)
  - Blood potassium decreased [Unknown]
  - Blood sodium decreased [Unknown]
  - Oedema [Unknown]
  - Fall [Unknown]
  - Local swelling [Unknown]
  - Weight increased [Unknown]
  - Limb injury [Unknown]
